FAERS Safety Report 9366696 (Version 2)
Quarter: 2013Q3

REPORT INFORMATION
  Report Type: Spontaneous
  Country: US (occurrence: US)
  Receive Date: 20130625
  Receipt Date: 20130924
  Transmission Date: 20140515
  Serious: No
  Sender: FDA-Public Use
  Company Number: US-PFIZER INC-2013187620

PATIENT
  Age: 52 Year
  Sex: Female
  Weight: 81.63 kg

DRUGS (3)
  1. EFFEXOR XR [Suspect]
     Indication: POSTMENOPAUSE
     Dosage: 75 MG, 2X/DAY
  2. NORVASC [Suspect]
     Indication: HYPERTENSION
     Dosage: 5 MG, 1X/DAY
     Dates: start: 2012
  3. ONGLYZA [Concomitant]
     Indication: DIABETES MELLITUS
     Dosage: 2.5 MG, 1X/DAY

REACTIONS (4)
  - Off label use [Unknown]
  - Feeling abnormal [Unknown]
  - Nausea [Unknown]
  - Blood pressure abnormal [Unknown]
